FAERS Safety Report 9799980 (Version 2)
Quarter: 2015Q3

REPORT INFORMATION
  Report Type: Spontaneous
  Country: US (occurrence: US)
  Receive Date: 20140106
  Receipt Date: 20150806
  Transmission Date: 20151125
  Serious: No
  Sender: FDA-Public Use
  Company Number: US-GILEAD-2010-0030488

PATIENT
  Age: 88 Year
  Sex: Female

DRUGS (11)
  1. LETAIRIS [Suspect]
     Active Substance: AMBRISENTAN
     Indication: PULMONARY ARTERIAL HYPERTENSION
     Route: 048
     Dates: start: 20090903
  2. PHENYTOIN. [Concomitant]
     Active Substance: PHENYTOIN
  3. FLAXSEED [Concomitant]
     Active Substance: FLAX SEED
  4. POTASSIUM [Concomitant]
     Active Substance: POTASSIUM
  5. MULTI-DAY [Concomitant]
  6. DIGOXIN. [Concomitant]
     Active Substance: DIGOXIN
  7. DORZOLAMIDE HCL/TIMO [Concomitant]
  8. REVATIO [Concomitant]
     Active Substance: SILDENAFIL CITRATE
  9. COUMADIN [Concomitant]
     Active Substance: WARFARIN SODIUM
  10. NORVASC [Concomitant]
     Active Substance: AMLODIPINE BESYLATE
  11. FUROSEMIDE. [Concomitant]
     Active Substance: FUROSEMIDE

REACTIONS (1)
  - Diarrhoea [Not Recovered/Not Resolved]

NARRATIVE: CASE EVENT DATE: 20100709
